FAERS Safety Report 10145926 (Version 1)
Quarter: 2014Q2

REPORT INFORMATION
  Report Type: Report from Study
  Country: US (occurrence: US)
  Receive Date: 20140501
  Receipt Date: 20140501
  Transmission Date: 20141212
  Serious: Yes (Life-Threatening)
  Sender: FDA-Public Use
  Company Number: US-ABBVIE-14P-163-1211541-00

PATIENT
  Sex: Female

DRUGS (1)
  1. CREON [Suspect]
     Indication: PANCREATIC INSUFFICIENCY

REACTIONS (1)
  - Investigation [Unknown]
